FAERS Safety Report 4268663-1 (Version None)
Quarter: 2004Q1

REPORT INFORMATION
  Report Type: 
  Country: None (occurrence: None)
  Receive Date: 20040108
  Receipt Date: 20031230
  Transmission Date: 20041129
  Serious: Yes (Hospitalization)
  Sender: FDA-Public Use
  Company Number: F04200300159

PATIENT
  Age: 83 Year
  Sex: Female

DRUGS (7)
  1. ARIXTRA [Suspect]
     Indication: HIP SURGERY
     Dosage: 2.5 MG OD SUBCUTANEOUS
     Route: 058
     Dates: start: 20030108, end: 20030116
  2. ARIXTRA [Suspect]
     Indication: THROMBOSIS PROPHYLAXIS
     Dosage: 2.5 MG OD SUBCUTANEOUS
     Route: 058
     Dates: start: 20030108, end: 20030116
  3. EUGLUCON (GLIBENCLAMIDE) [Concomitant]
  4. BAYOTESIN(NITRENDIPINE) [Concomitant]
  5. DILATREND 25 (CARVEDILOL) [Concomitant]
  6. ARELIX ACE (PIRETANID + RAMIPRIL) [Concomitant]
  7. DIGACIN (DIGOXIN) [Concomitant]

REACTIONS (3)
  - GASTRIC CANCER [None]
  - GASTROINTESTINAL HAEMORRHAGE [None]
  - PLATELET COUNT INCREASED [None]
